FAERS Safety Report 7249259-6 (Version None)
Quarter: 2011Q1

REPORT INFORMATION
  Report Type: 
  Country: None (occurrence: None)
  Receive Date: 20110128
  Receipt Date: 20101206
  Transmission Date: 20110831
  Serious: No
  Sender: FDA-Public Use
  Company Number: US-BAYER-2010-004818

PATIENT

DRUGS (1)
  1. MAGNEVIST [Suspect]
     Dosage: UNK
     Route: 042
     Dates: start: 20081201

REACTIONS (2)
  - BURNING SENSATION [None]
  - INFUSION SITE REACTION [None]
